FAERS Safety Report 18810734 (Version 2)
Quarter: 2021Q1

REPORT INFORMATION
  Report Type: Report from Study
  Country: AR (occurrence: AR)
  Receive Date: 20210129
  Receipt Date: 20210211
  Transmission Date: 20210419
  Serious: Yes (Other)
  Sender: FDA-Public Use
  Company Number: AR-EMD SERONO-9214810

PATIENT
  Age: 50 Year
  Sex: Female

DRUGS (1)
  1. BAVENCIO [Suspect]
     Active Substance: AVELUMAB
     Indication: NEUROENDOCRINE CARCINOMA OF THE SKIN
     Route: 042
     Dates: start: 20200814, end: 20210115

REACTIONS (3)
  - Hyperthyroidism [Unknown]
  - Bone marrow disorder [Not Recovered/Not Resolved]
  - Myelitis [Unknown]

NARRATIVE: CASE EVENT DATE: 202101
